FAERS Safety Report 25244857 (Version 1)
Quarter: 2025Q2

REPORT INFORMATION
  Report Type: Spontaneous
  Country: GB (occurrence: GB)
  Receive Date: 20250428
  Receipt Date: 20250428
  Transmission Date: 20250717
  Serious: Yes (Hospitalization, Other)
  Sender: MYLAN
  Company Number: GB-MYLANLABS-2025M1007821

PATIENT
  Sex: Female

DRUGS (1)
  1. CLOZARIL [Suspect]
     Active Substance: CLOZAPINE
     Indication: Schizophrenia
     Dosage: 175 MILLIGRAM, BID
     Dates: start: 20230607

REACTIONS (4)
  - Disorientation [Unknown]
  - Seizure [Unknown]
  - Dizziness [Unknown]
  - Thrombocytopenia [Unknown]
